FAERS Safety Report 19252445 (Version 1)
Quarter: 2021Q2

REPORT INFORMATION
  Report Type: Report from Study
  Country: None (occurrence: AU)
  Receive Date: 20210512
  Receipt Date: 20210512
  Transmission Date: 20210717
  Serious: Yes (Hospitalization)
  Sender: FDA-Public Use
  Company Number: AU-ABBVIE-21K-008-3902158-00

PATIENT
  Age: 83 Year
  Sex: Male

DRUGS (2)
  1. IMBRUVICA [Suspect]
     Active Substance: IBRUTINIB
     Indication: CHRONIC LYMPHOCYTIC LEUKAEMIA
     Route: 048
     Dates: start: 20150101
  2. IMBRUVICA [Suspect]
     Active Substance: IBRUTINIB
     Dosage: 140 MG (2 CAPSULES PER DAY)
     Route: 048

REACTIONS (2)
  - Dyspnoea [Recovered/Resolved]
  - Fluid retention [Recovered/Resolved]

NARRATIVE: CASE EVENT DATE: 20210421
